FAERS Safety Report 14069827 (Version 4)
Quarter: 2018Q1

REPORT INFORMATION
  Report Type: Spontaneous
  Country: US (occurrence: US)
  Receive Date: 20171010
  Receipt Date: 20180105
  Transmission Date: 20180508
  Serious: Yes (Death, Hospitalization)
  Sender: FDA-Public Use
  Company Number: US-PFIZER INC-2017430491

PATIENT
  Age: 76 Year
  Sex: Female

DRUGS (1)
  1. INLYTA [Suspect]
     Active Substance: AXITINIB
     Indication: NEOPLASM MALIGNANT
     Dosage: UNK

REACTIONS (6)
  - Full blood count decreased [Unknown]
  - Hepatic failure [Fatal]
  - Cystitis [Unknown]
  - Renal failure [Fatal]
  - Asthenia [Unknown]
  - Neoplasm progression [Fatal]
